FAERS Safety Report 19765921 (Version 1)
Quarter: 2021Q3

REPORT INFORMATION
  Report Type: Spontaneous
  Country: JP (occurrence: JP)
  Receive Date: 20210830
  Receipt Date: 20210830
  Transmission Date: 20211014
  Serious: Yes (Other)
  Sender: FDA-Public Use
  Company Number: JP-LUPIN PHARMACEUTICALS INC.-2021-15930

PATIENT
  Age: 29 Year
  Sex: Female

DRUGS (1)
  1. POTASSIUM [Suspect]
     Active Substance: POTASSIUM
     Indication: BASEDOW^S DISEASE
     Dosage: 38.2 MILLIGRAM, QD
     Route: 065

REACTIONS (1)
  - Thyroiditis [Recovered/Resolved]
